FAERS Safety Report 11444785 (Version 5)
Quarter: 2016Q3

REPORT INFORMATION
  Report Type: Report from Study
  Country: US (occurrence: US)
  Receive Date: 20150902
  Receipt Date: 20160708
  Transmission Date: 20161109
  Serious: Yes (Other)
  Sender: FDA-Public Use
  Company Number: PHEH2015US000977

PATIENT
  Age: 2 Year
  Sex: Male

DRUGS (16)
  1. AFINITOR [Suspect]
     Active Substance: EVEROLIMUS
     Dosage: 3 MG, QD
     Route: 048
  2. AFINITOR [Suspect]
     Active Substance: EVEROLIMUS
     Dosage: 7.5 MG, UNK
     Route: 048
  3. VIGABATRINE [Concomitant]
     Active Substance: VIGABATRIN
     Indication: SEIZURE
     Route: 065
  4. RAPAMYCIN [Concomitant]
     Active Substance: SIROLIMUS
     Indication: PRODUCT USED FOR UNKNOWN INDICATION
     Route: 065
  5. VITAMIN D [Concomitant]
     Active Substance: CHOLECALCIFEROL
     Indication: PRODUCT USED FOR UNKNOWN INDICATION
     Route: 065
  6. AFINITOR [Suspect]
     Active Substance: EVEROLIMUS
     Indication: GANGLIOGLIOMA
     Dosage: 3 MG, QD
     Route: 048
     Dates: start: 20141222
  7. AFINITOR [Suspect]
     Active Substance: EVEROLIMUS
     Dosage: 3 MG, UNK
     Route: 048
     Dates: start: 20150204
  8. AFINITOR [Suspect]
     Active Substance: EVEROLIMUS
     Dosage: 2 TO 3 MG AND OCCASIONALLY 4 MG
     Route: 048
  9. AFINITOR [Suspect]
     Active Substance: EVEROLIMUS
     Dosage: 4 MG, DAILY
     Route: 048
  10. AFINITOR [Suspect]
     Active Substance: EVEROLIMUS
     Dosage: 10 MG, QD
     Route: 048
     Dates: start: 20160622, end: 20160702
  11. AFINITOR [Suspect]
     Active Substance: EVEROLIMUS
     Dosage: 2 TO 3 MG, UNK
     Route: 048
  12. AFINITOR [Suspect]
     Active Substance: EVEROLIMUS
     Dosage: 2 MG, UNK
     Route: 048
  13. AFINITOR [Suspect]
     Active Substance: EVEROLIMUS
     Dosage: 4 MG, UNK
     Route: 048
     Dates: start: 201501
  14. AFINITOR [Suspect]
     Active Substance: EVEROLIMUS
     Dosage: 2 TO 3 MG, UNK
     Route: 048
  15. TAURINE [Concomitant]
     Active Substance: TAURINE
     Indication: PRODUCT USED FOR UNKNOWN INDICATION
     Route: 065
  16. SABRIL [Concomitant]
     Active Substance: VIGABATRIN
     Indication: SEIZURE
     Route: 065

REACTIONS (14)
  - White blood cell count decreased [Not Recovered/Not Resolved]
  - Respiratory tract infection [Unknown]
  - Pyrexia [Recovered/Resolved]
  - Staphylococcal infection [Unknown]
  - Rash [Recovered/Resolved]
  - Seizure [Not Recovered/Not Resolved]
  - Blood cholesterol increased [Recovering/Resolving]
  - Seizure [Recovered/Resolved]
  - Malaise [Unknown]
  - Mouth swelling [Unknown]
  - Hand-foot-and-mouth disease [Recovering/Resolving]
  - Oral pain [Unknown]
  - Nasopharyngitis [Unknown]
  - Stomatitis [Not Recovered/Not Resolved]

NARRATIVE: CASE EVENT DATE: 20151108
